FAERS Safety Report 6314179-8 (Version None)
Quarter: 2009Q3

REPORT INFORMATION
  Report Type: 
  Country: None (occurrence: None)
  Receive Date: 20090818
  Receipt Date: 20090813
  Transmission Date: 20100115
  Serious: Yes (Other)
  Sender: FDA-Public Use
  Company Number: US-ALLERGAN-0911328US

PATIENT
  Age: 60 Year
  Sex: Female

DRUGS (4)
  1. BOTOX [Suspect]
     Indication: TORTICOLLIS
     Dosage: 330 UNITS, SINGLE
     Route: 030
     Dates: start: 20090605, end: 20090605
  2. BOTOX [Suspect]
     Indication: BLEPHAROSPASM
     Dosage: 270 UNITS, SINGLE
     Route: 030
  3. BOTOX [Suspect]
     Dosage: EVERY 3 MONTHS
     Route: 030
     Dates: start: 20060101
  4. KLONOPIN [Concomitant]
     Indication: MUSCLE RELAXANT THERAPY
     Route: 048

REACTIONS (8)
  - ASTHENIA [None]
  - DEPRESSION [None]
  - EYELID PTOSIS [None]
  - FACIAL PARESIS [None]
  - INCREASED UPPER AIRWAY SECRETION [None]
  - MASTICATION DISORDER [None]
  - MUSCULAR WEAKNESS [None]
  - SPEECH DISORDER [None]
